FAERS Safety Report 21371954 (Version 1)
Quarter: 2022Q3

REPORT INFORMATION
  Report Type: Spontaneous
  Country: DE (occurrence: DE)
  Receive Date: 20220923
  Receipt Date: 20220923
  Transmission Date: 20221027
  Serious: Yes (Hospitalization)
  Sender: FDA-Public Use
  Company Number: DE-ADRED-07623-01

PATIENT
  Age: 63 Year
  Sex: Male

DRUGS (5)
  1. IBUPROFEN [Suspect]
     Active Substance: IBUPROFEN
     Indication: Product used for unknown indication
     Dosage: IF NECESSARY
     Route: 048
  2. DICLOFENAC [Suspect]
     Active Substance: DICLOFENAC
     Indication: Product used for unknown indication
     Dosage: IF NECESSARY
     Route: 065
  3. METAMIZOL [Suspect]
     Active Substance: METAMIZOLE SODIUM
     Indication: Product used for unknown indication
     Dosage: IF NECESSARY
     Route: 048
  4. AZITHROMYCIN [Suspect]
     Active Substance: AZITHROMYCIN
     Indication: Product used for unknown indication
     Dosage: 500 MG, ACCIDENTALLY ALL THREE THE DAY BEFORE
     Route: 048
  5. ACETAMINOPHEN\ASCORBIC ACID\CAFFEINE\CHLORPHENIRAMINE MALEATE [Concomitant]
     Active Substance: ACETAMINOPHEN\ASCORBIC ACID\CAFFEINE\CHLORPHENIRAMINE MALEATE
     Indication: Product used for unknown indication
     Dosage: IF NECESSARY
     Route: 048

REACTIONS (5)
  - Transaminases increased [Unknown]
  - Vomiting [Unknown]
  - Gastritis [Unknown]
  - Abdominal pain upper [Unknown]
  - Medication error [Unknown]

NARRATIVE: CASE EVENT DATE: 20210831
